FAERS Safety Report 19402434 (Version 2)
Quarter: 2021Q3

REPORT INFORMATION
  Report Type: Spontaneous
  Country: JP (occurrence: JP)
  Receive Date: 20210611
  Receipt Date: 20210708
  Transmission Date: 20211014
  Serious: Yes (Other)
  Sender: FDA-Public Use
  Company Number: JP-BEH-2021132533

PATIENT
  Age: 31 Year
  Sex: Female

DRUGS (7)
  1. HUMAN IMMUNOGLOBULIN (NC) (IMMUNOGLOBULIN HUMAN NORMAL) [Suspect]
     Active Substance: HUMAN IMMUNOGLOBULIN G
     Indication: DISSEMINATED INTRAVASCULAR COAGULATION
     Route: 065
  2. ANTITHROMBIN III [Suspect]
     Active Substance: ANTITHROMBIN III HUMAN
     Route: 065
  3. CEFOZOPRAN [Suspect]
     Active Substance: CEFOZOPRAN
     Route: 065
  4. METRONIDAZOLE. [Suspect]
     Active Substance: METRONIDAZOLE
     Route: 065
  5. THROMBOMODULIN ALFA [Suspect]
     Active Substance: THROMBOMODULIN ALFA
     Route: 065
  6. MEROPENEM. [Suspect]
     Active Substance: MEROPENEM
     Route: 065
  7. AZITHROMYCIN ANHYDROUS. [Suspect]
     Active Substance: AZITHROMYCIN ANHYDROUS
     Route: 065

REACTIONS (4)
  - Off label use [Unknown]
  - Foetal death [Not Recovered/Not Resolved]
  - Exposure during pregnancy [Not Recovered/Not Resolved]
  - No adverse event [Unknown]
